FAERS Safety Report 20584671 (Version 2)
Quarter: 2022Q1

REPORT INFORMATION
  Report Type: Spontaneous
  Country: CN (occurrence: CN)
  Receive Date: 20220311
  Receipt Date: 20220318
  Transmission Date: 20220423
  Serious: Yes (Hospitalization)
  Sender: FDA-Public Use
  Company Number: CN-009507513-2203CHN002109

PATIENT
  Age: 68 Year
  Sex: Female
  Weight: 55 kg

DRUGS (6)
  1. CILASTATIN SODIUM\IMIPENEM [Suspect]
     Active Substance: CILASTATIN SODIUM\IMIPENEM
     Indication: Pyrexia
     Dosage: 1 GRAM, THREE TIMES A DAY (QID) (EVERY 8 HOURS (Q8H))
     Route: 041
     Dates: start: 20220206, end: 20220210
  2. CILASTATIN SODIUM\IMIPENEM [Suspect]
     Active Substance: CILASTATIN SODIUM\IMIPENEM
     Indication: Pneumonia
  3. DICLOFENAC SODIUM;LIDOCAINE HYDROCHLORIDE [Concomitant]
     Indication: Pyrexia
     Dosage: 2 MG (ALSO REPORTED AS 2 ML, CONFLICT INFORMATION), QD
     Route: 030
     Dates: start: 20220206, end: 20220206
  4. DICLOFENAC SODIUM;LIDOCAINE HYDROCHLORIDE [Concomitant]
     Indication: Pneumonia
  5. SODIUM CHLORIDE [Concomitant]
     Active Substance: SODIUM CHLORIDE
     Indication: Pyrexia
     Dosage: 100 ML, THREE TIMES A DAY (QID) (EVERY 8 HOURS (Q8H))
     Route: 041
     Dates: start: 20220206, end: 20220210
  6. SODIUM CHLORIDE [Concomitant]
     Active Substance: SODIUM CHLORIDE
     Indication: Pneumonia

REACTIONS (3)
  - Mental disorder [Recovering/Resolving]
  - Somnolence [Unknown]
  - Blood pressure decreased [Unknown]

NARRATIVE: CASE EVENT DATE: 20220206
